FAERS Safety Report 16107606 (Version 2)
Quarter: 2019Q2

REPORT INFORMATION
  Report Type: Spontaneous
  Country: JP (occurrence: JP)
  Receive Date: 20190322
  Receipt Date: 20190408
  Transmission Date: 20190711
  Serious: Yes (Other)
  Sender: FDA-Public Use
  Company Number: JP-009507513-1903JPN002225J

PATIENT
  Age: 8 Decade
  Sex: Female

DRUGS (2)
  1. NASONEX [Suspect]
     Active Substance: MOMETASONE FUROATE
     Indication: RHINITIS ALLERGIC
     Dosage: 50 MICRO-G/MICRO-L, QID
     Route: 045
     Dates: start: 201810
  2. JOSAMYCIN [Suspect]
     Active Substance: JOSAMYCIN
     Indication: TOOTH EXTRACTION
     Dosage: UNK
     Route: 065
     Dates: start: 20190226

REACTIONS (5)
  - Tooth extraction [Unknown]
  - Glaucoma [Unknown]
  - Nasopharyngitis [Unknown]
  - Muscle spasms [Unknown]
  - Intraocular pressure increased [Unknown]

NARRATIVE: CASE EVENT DATE: 20190226
